FAERS Safety Report 4777999-7 (Version None)
Quarter: 2005Q3

REPORT INFORMATION
  Report Type: 
  Country: None (occurrence: None)
  Receive Date: 20050921
  Receipt Date: 20050906
  Transmission Date: 20060218
  Serious: Yes (Hospitalization)
  Sender: FDA-Public Use
  Company Number: GBS050818213

PATIENT
  Age: 55 Year
  Sex: Female
  Weight: 89 kg

DRUGS (2)
  1. PROZAC [Suspect]
     Indication: DEPRESSION
     Dosage: 20 MG
     Dates: start: 20050625, end: 20050625
  2. CARBAMAZEPINE [Concomitant]

REACTIONS (8)
  - ABDOMINAL PAIN [None]
  - ANXIETY [None]
  - CHILLS [None]
  - DELUSION [None]
  - EMOTIONAL DISTRESS [None]
  - MALAISE [None]
  - TREMOR [None]
  - VOMITING [None]
